FAERS Safety Report 10472714 (Version 1)
Quarter: 2014Q3

REPORT INFORMATION
  Report Type: Spontaneous
  Country: US (occurrence: US)
  Receive Date: 20140924
  Receipt Date: 20140924
  Transmission Date: 20150326
  Serious: No
  Sender: FDA-Public Use
  Company Number: US-BANPHARM-20131793

PATIENT
  Age: 72 Year
  Sex: Male
  Weight: 62.6 kg

DRUGS (11)
  1. FLUOXETINE [Concomitant]
     Active Substance: FLUOXETINE\FLUOXETINE HYDROCHLORIDE
  2. FISH OIL [Concomitant]
     Active Substance: FISH OIL
  3. MULTIVITAMINS [Concomitant]
     Active Substance: VITAMINS
  4. REJUVETOL [Concomitant]
  5. FOCUS FACTOR [Concomitant]
  6. VITAMIN D3 [Concomitant]
     Active Substance: CHOLECALCIFEROL
  7. NAPROXEN SODIUM. [Concomitant]
     Active Substance: NAPROXEN SODIUM
  8. ASPIRIN 81 MG EC [Concomitant]
  9. LOPERAMIDE HCL [Suspect]
     Active Substance: LOPERAMIDE HYDROCHLORIDE
     Indication: DIARRHOEA
     Dosage: NO MORE THAN 4 SOFTGELS IN 24 HOURS
     Dates: start: 20131006, end: 20131007
  10. PANTOPRAZOLE SODIUM [Concomitant]
     Active Substance: PANTOPRAZOLE SODIUM
  11. ALLERGY RELIEF NOS [Concomitant]
     Active Substance: ACETAMINOPHEN\CHLORPHENIRAMINE MALEATE\PHENYLEPHRINE HYDROCHLORIDE OR CETIRIZINE HYDROCHLORIDE OR CHLORPHENIRAMINE MALEATE OR CLEMASTINE FUMARATE OR DIPHENHYDRAMINE HYDROCHLORIDE OR FEXOFENADINE HYDROCHLORIDE OR LORATADINE

REACTIONS (1)
  - Drug ineffective [Unknown]
